FAERS Safety Report 5940490-6 (Version None)
Quarter: 2008Q4

REPORT INFORMATION
  Report Type: 
  Country: None (occurrence: None)
  Receive Date: 20081103
  Receipt Date: 20081103
  Transmission Date: 20090506
  Serious: No
  Sender: FDA-Public Use
  Company Number: None

PATIENT
  Age: 42 Year
  Sex: Male

DRUGS (2)
  1. PROGRAF [Suspect]
     Dosage: CAPSULE 0.5 MG, BID
  2. ADVAGRAF [Suspect]
     Dosage: CAPSULE 2MG, BID

REACTIONS (4)
  - DRUG PRESCRIBING ERROR [None]
  - MALAISE [None]
  - MEDICATION ERROR [None]
  - TRANSPLANT REJECTION [None]
